FAERS Safety Report 25336755 (Version 1)
Quarter: 2025Q2

REPORT INFORMATION
  Report Type: Spontaneous
  Country: CA (occurrence: CA)
  Receive Date: 20250520
  Receipt Date: 20250520
  Transmission Date: 20250717
  Serious: Yes (Other)
  Sender: HIKMA
  Company Number: CA-HIKMA PHARMACEUTICALS USA INC.-CA-H14001-25-04325

PATIENT
  Age: 27 Year
  Sex: Male

DRUGS (12)
  1. ALLERGENIC EXTRACTS [Suspect]
     Active Substance: ALLERGENIC EXTRACTS
     Indication: Seasonal allergy
     Route: 065
  2. ALLERGENIC EXTRACTS [Suspect]
     Active Substance: ALLERGENIC EXTRACTS
     Indication: Rhinitis allergic
  3. ALLERGENIC EXTRACTS [Suspect]
     Active Substance: ALLERGENIC EXTRACTS
     Indication: Seasonal allergy
     Route: 065
  4. ALLERGENIC EXTRACTS [Suspect]
     Active Substance: ALLERGENIC EXTRACTS
     Indication: Rhinitis allergic
  5. ALLERGENIC EXTRACTS [Suspect]
     Active Substance: ALLERGENIC EXTRACTS
     Indication: Seasonal allergy
     Route: 065
  6. ALLERGENIC EXTRACTS [Suspect]
     Active Substance: ALLERGENIC EXTRACTS
     Indication: Rhinitis allergic
  7. ALLERGENIC EXTRACTS [Suspect]
     Active Substance: ALLERGENIC EXTRACTS
     Indication: Seasonal allergy
     Route: 065
  8. ALLERGENIC EXTRACTS [Suspect]
     Active Substance: ALLERGENIC EXTRACTS
     Indication: Rhinitis allergic
  9. PHENOL [Suspect]
     Active Substance: PHENOL
     Indication: Seasonal allergy
     Route: 058
  10. PHENOL [Suspect]
     Active Substance: PHENOL
     Indication: Rhinitis allergic
  11. SODIUM CHLORIDE [Suspect]
     Active Substance: SODIUM CHLORIDE
     Indication: Seasonal allergy
     Route: 058
  12. SODIUM CHLORIDE [Suspect]
     Active Substance: SODIUM CHLORIDE
     Indication: Rhinitis allergic

REACTIONS (7)
  - Dyspnoea [Recovered/Resolved]
  - Flushing [Recovered/Resolved]
  - Sinus congestion [Recovered/Resolved]
  - Swelling face [Recovered/Resolved]
  - Throat tightness [Recovered/Resolved]
  - Product packaging confusion [Recovered/Resolved]
  - Wrong dose [Recovered/Resolved]
